FAERS Safety Report 8379441-6 (Version None)
Quarter: 2012Q2

REPORT INFORMATION
  Report Type: 
  Country: None (occurrence: None)
  Receive Date: 20120523
  Receipt Date: 20120508
  Transmission Date: 20120825
  Serious: Yes (Hospitalization, Other)
  Sender: FDA-Public Use
  Company Number: US-JNJFOC-20120508403

PATIENT
  Sex: Female

DRUGS (1)
  1. DURAGESIC-100 [Suspect]
     Indication: ARTHROPATHY
     Route: 062

REACTIONS (9)
  - SKIN ULCER [None]
  - CHILLS [None]
  - RETCHING [None]
  - PERONEAL NERVE PALSY [None]
  - SKIN EXFOLIATION [None]
  - PRODUCT QUALITY ISSUE [None]
  - DECUBITUS ULCER [None]
  - FATIGUE [None]
  - SEPSIS [None]
